FAERS Safety Report 7777490-X (Version None)
Quarter: 2011Q3

REPORT INFORMATION
  Report Type: 
  Country: None (occurrence: None)
  Receive Date: 20110926
  Receipt Date: 20110821
  Transmission Date: 20111222
  Serious: Yes (Hospitalization)
  Sender: FDA-Public Use
  Company Number: KR-BAYER-2011-089183

PATIENT
  Age: 58 Year
  Sex: Male
  Weight: 53 kg

DRUGS (20)
  1. TRIMEBUTINE MALEATE [Concomitant]
     Indication: VARICES OESOPHAGEAL
     Dosage: 300 MG, BID
     Dates: start: 20110408
  2. MEGESTROL ACETATE [Concomitant]
     Indication: DECREASED APPETITE
     Dosage: 20 ML, QD
     Dates: start: 20110517
  3. TORSEMIDE [Concomitant]
     Indication: ASCITES
     Dosage: 5 MG, QD
     Dates: start: 20110614, end: 20110704
  4. POTASSIUM CANRENOATE [Concomitant]
     Indication: OEDEMA PERIPHERAL
     Dosage: 25 MG, QD
     Dates: start: 20110705, end: 20110815
  5. URSODIOL [Concomitant]
     Indication: HEPATITIS B
     Dosage: 200 MG, TID
     Dates: start: 20110408
  6. LACTITOL [Concomitant]
     Indication: CONSTIPATION
     Dosage: 20 G, QD
     Dates: start: 20110408, end: 20110613
  7. TRIMEBUTINE MALEATE [Concomitant]
     Indication: GASTROOESOPHAGEAL REFLUX DISEASE
  8. TORSEMIDE [Concomitant]
     Dosage: 5 MG, QD
     Dates: start: 20110816
  9. LACTOBACILLUS ACIDOPHILUS [Concomitant]
     Indication: CONSTIPATION
     Dosage: 300 MG, TID
     Dates: start: 20110408
  10. PROTON PUMP INHIBITORS [Concomitant]
     Indication: VARICES OESOPHAGEAL
     Dosage: 60 MG, TID
     Dates: start: 20110408
  11. PROTON PUMP INHIBITORS [Concomitant]
     Indication: GASTRIC VARICES
  12. TRIMEBUTINE MALEATE [Concomitant]
     Indication: GASTRIC VARICES
  13. CENTRUM SILVER [Concomitant]
     Indication: DECREASED APPETITE
     Dosage: 1 DF, QD
     Dates: start: 20110408
  14. TORSEMIDE [Concomitant]
     Indication: OEDEMA PERIPHERAL
     Dosage: 2.5 MG, QD
     Dates: start: 20110705, end: 20110815
  15. POTASSIUM CANRENOATE [Concomitant]
     Dosage: 50 MG, QD
     Dates: start: 20110816
  16. SORAFENIB (RAF KINASE INHIBITOR) [Suspect]
     Indication: HEPATIC NEOPLASM MALIGNANT
     Dosage: 400 MG, BID
     Route: 048
     Dates: start: 20110504, end: 20110725
  17. LEVOSULPIRIDE [Concomitant]
     Indication: HEPATIC NEOPLASM MALIGNANT
     Dosage: 25 MG, TID
     Dates: start: 20110408
  18. PROTON PUMP INHIBITORS [Concomitant]
     Indication: GASTROOESOPHAGEAL REFLUX DISEASE
  19. SORAFENIB (RAF KINASE INHIBITOR) [Suspect]
     Dosage: 400 MG, QD
     Route: 048
     Dates: start: 20110726, end: 20110815
  20. POTASSIUM CANRENOATE [Concomitant]
     Indication: ASCITES
     Dosage: 50 MG, QD
     Dates: start: 20110614, end: 20110704

REACTIONS (1)
  - HEPATIC ENCEPHALOPATHY [None]
